FAERS Safety Report 16902525 (Version 2)
Quarter: 2019Q4

REPORT INFORMATION
  Report Type: Spontaneous
  Country: JP (occurrence: JP)
  Receive Date: 20191010
  Receipt Date: 20191213
  Transmission Date: 20200122
  Serious: Yes (Death, Life-Threatening, Other)
  Sender: FDA-Public Use
  Company Number: JP-PFIZER INC-2019431262

PATIENT
  Age: 77 Year
  Sex: Male

DRUGS (9)
  1. VANCOMYCIN KOBAYASHI [Suspect]
     Active Substance: VANCOMYCIN HYDROCHLORIDE
     Indication: BACTERAEMIA
     Dosage: 500 MG, AFTER HEMODIALYSIS
     Route: 041
     Dates: start: 20190828, end: 20190902
  2. INTRALIPOS [Concomitant]
     Active Substance: SOYBEAN OIL
     Dosage: UNK
     Dates: start: 20190814, end: 20190905
  3. MINERALIN [CALCIUM;CHROMIUM;IODINE;MAGNESIUM;MANGANESE;MOLYBDENUM;SELE [Concomitant]
     Dosage: UNK
  4. HICALIQ [Concomitant]
     Active Substance: CALCIUM GLUCONATE\DEXTROSE\MAGNESIUM SULFATE\POTASSIUM ACETATE\POTASSIUM PHOSPHATE, DIBASIC\ZINC SULFATE
     Dosage: UNK
     Dates: start: 20190818
  5. KIDMIN [ALANINE;ARGININE;ASPARTIC ACID;CYSTEINE;GLUTAMIC ACID;HISTIDIN [Concomitant]
     Dosage: UNK
     Dates: start: 20190818
  6. UNASYN-S 3G [Suspect]
     Active Substance: AMPICILLIN SODIUM\SULBACTAM SODIUM
     Indication: CELLULITIS
     Dosage: 3 G, 7 TIMES PER DAY
     Route: 041
     Dates: start: 20190807, end: 20190820
  7. CLARITIN REDITABS [Concomitant]
     Active Substance: LORATADINE
     Dosage: UNK
     Dates: start: 20190821
  8. MULTAMIN [ASCORBIC ACID;BIOTIN;COLECALCIFEROL;CYANOCOBALAMIN;FOLIC ACI [Concomitant]
     Dosage: UNK
  9. NORADRENALINE [NOREPINEPHRINE] [Concomitant]
     Active Substance: NOREPINEPHRINE
     Dosage: UNK
     Dates: start: 20190827, end: 20190902

REACTIONS (3)
  - Stevens-Johnson syndrome [Fatal]
  - Off label use [Unknown]
  - Product use issue [Unknown]

NARRATIVE: CASE EVENT DATE: 20190807
